FAERS Safety Report 12174051 (Version 1)
Quarter: 2016Q1

REPORT INFORMATION
  Report Type: Spontaneous
  Country: US (occurrence: None)
  Receive Date: 20160311
  Receipt Date: 20160311
  Transmission Date: 20160526
  Serious: Yes (Hospitalization)
  Sender: FDA-Public Use
  Company Number: None

PATIENT
  Age: 51 Year
  Sex: Male
  Weight: 78.02 kg

DRUGS (6)
  1. QUETIAPINE [Concomitant]
     Active Substance: QUETIAPINE
  2. BUPROPION XL [Suspect]
     Active Substance: BUPROPION
     Indication: SCHIZOAFFECTIVE DISORDER
     Dosage: 1 TABLET QD ORAL
     Route: 048
     Dates: start: 20160212, end: 20160226
  3. BENZTROPINE [Concomitant]
     Active Substance: BENZTROPINE
  4. OLANZAPINE. [Concomitant]
     Active Substance: OLANZAPINE
  5. FLUOXETINE [Concomitant]
     Active Substance: FLUOXETINE HYDROCHLORIDE
  6. CLONAZEPAM. [Concomitant]
     Active Substance: CLONAZEPAM

REACTIONS (1)
  - Generalised tonic-clonic seizure [None]

NARRATIVE: CASE EVENT DATE: 20160226
